FAERS Safety Report 8069239-0 (Version None)
Quarter: 2012Q1

REPORT INFORMATION
  Report Type: 
  Country: None (occurrence: None)
  Receive Date: 20120125
  Receipt Date: 20120120
  Transmission Date: 20120608
  Serious: Yes (Hospitalization, Other)
  Sender: FDA-Public Use
  Company Number: US-JNJFOC-20111201522

PATIENT
  Sex: Male
  Weight: 90.72 kg

DRUGS (5)
  1. OXYCODONE HCL [Concomitant]
     Indication: PAIN
  2. DURAGESIC-100 [Suspect]
     Indication: PRODUCT USED FOR UNKNOWN INDICATION
     Route: 062
     Dates: start: 20010101
  3. DURAGESIC-100 [Suspect]
     Route: 062
     Dates: start: 20110101
  4. FENTANYL CITRATE [Suspect]
     Indication: PRODUCT USED FOR UNKNOWN INDICATION
     Route: 062
     Dates: start: 20110801, end: 20110101
  5. METFORMIN HCL [Concomitant]
     Indication: DIABETES MELLITUS
     Route: 048

REACTIONS (11)
  - DIABETIC NEUROPATHY [None]
  - NIGHTMARE [None]
  - GROIN PAIN [None]
  - BLOOD GLUCOSE INCREASED [None]
  - PRODUCT QUALITY ISSUE [None]
  - WITHDRAWAL SYNDROME [None]
  - DIABETES MELLITUS [None]
  - UNEVALUABLE EVENT [None]
  - DRUG WITHDRAWAL SYNDROME [None]
  - NONSPECIFIC REACTION [None]
  - BURNING SENSATION [None]
